FAERS Safety Report 20874324 (Version 1)
Quarter: 2022Q2

REPORT INFORMATION
  Report Type: Spontaneous
  Country: US (occurrence: None)
  Receive Date: 20220525
  Receipt Date: 20220525
  Transmission Date: 20220721
  Serious: Yes (Hospitalization)
  Sender: FDA-Public Use
  Company Number: None

PATIENT
  Sex: Female

DRUGS (2)
  1. DROXIDOPA [Suspect]
     Active Substance: DROXIDOPA
     Indication: Endocrine disorder
     Dosage: TAKE 1 CAPSULE (300 MG TOTAL) BY MOUTH EVERY MORINING AND 1 CAPSULE  (300 MG TOTAL) BEFORE BEDTIME.
     Route: 048
     Dates: start: 20210312
  2. DROXIDOPA [Suspect]
     Active Substance: DROXIDOPA
     Dosage: FREQUENCY : AS DIRECTED;?
     Route: 048

REACTIONS (1)
  - Therapy interrupted [None]
